FAERS Safety Report 5133781-2 (Version None)
Quarter: 2006Q4

REPORT INFORMATION
  Report Type: 
  Country: None (occurrence: None)
  Receive Date: 20061018
  Receipt Date: 20061005
  Transmission Date: 20070319
  Serious: Yes (Hospitalization)
  Sender: FDA-Public Use
  Company Number: 2006118745

PATIENT
  Sex: 0

DRUGS (1)
  1. DELTACORTRIL [Suspect]
     Dosage: (2.5 MG), ORAL
     Route: 048

REACTIONS (1)
  - SURGERY [None]
